FAERS Safety Report 23267941 (Version 4)
Quarter: 2025Q1

REPORT INFORMATION
  Report Type: Report from Study
  Country: US (occurrence: US)
  Receive Date: 20231206
  Receipt Date: 20250122
  Transmission Date: 20250409
  Serious: Yes (Other)
  Sender: TAKEDA
  Company Number: US-TAKEDA-2021TUS054534

PATIENT
  Age: 66 Year
  Sex: Male

DRUGS (3)
  1. HUMAN IMMUNOGLOBULIN G\HYALURONIDASE RECOMBINANT HUMAN [Suspect]
     Active Substance: HUMAN IMMUNOGLOBULIN G\HYALURONIDASE (HUMAN RECOMBINANT)
     Indication: Primary immunodeficiency syndrome
  2. HUMAN IMMUNOGLOBULIN G\HYALURONIDASE RECOMBINANT HUMAN [Suspect]
     Active Substance: HUMAN IMMUNOGLOBULIN G\HYALURONIDASE (HUMAN RECOMBINANT)
     Dosage: UNK UNK, MONTHLY
  3. HUMAN IMMUNOGLOBULIN G\HYALURONIDASE RECOMBINANT HUMAN [Suspect]
     Active Substance: HUMAN IMMUNOGLOBULIN G\HYALURONIDASE (HUMAN RECOMBINANT)
     Dosage: 50 GRAM, Q4WEEKS

REACTIONS (7)
  - Oesophageal candidiasis [Unknown]
  - Irritable bowel syndrome [Unknown]
  - COVID-19 [Recovered/Resolved]
  - Inappropriate schedule of product administration [Unknown]
  - Raynaud^s phenomenon [Unknown]
  - Fungal foot infection [Unknown]
  - Infection [Unknown]

NARRATIVE: CASE EVENT DATE: 20211101
